FAERS Safety Report 5672717-2 (Version None)
Quarter: 2008Q1

REPORT INFORMATION
  Report Type: 
  Country: None (occurrence: None)
  Receive Date: 20080319
  Receipt Date: 20071106
  Transmission Date: 20080703
  Serious: No
  Sender: FDA-Public Use
  Company Number: US-KINGPHARMUSA00001-K200701435

PATIENT

DRUGS (5)
  1. ALTACE [Suspect]
     Indication: HYPERTENSION
     Dosage: 2.5 MG, QD
     Route: 048
     Dates: start: 20071001, end: 20070101
  2. TOPROL-XL [Concomitant]
     Indication: HYPERTENSION
     Dosage: UNK, QD
  3. NORVASC /00972401/ [Concomitant]
     Indication: HYPERTENSION
     Dosage: UNK, QD
  4. GLUCOPHAGE [Concomitant]
     Indication: DIABETES MELLITUS
     Dosage: UNK, QD
  5. GLUCOTROL [Concomitant]
     Indication: DIABETES MELLITUS
     Dosage: UNK, QD

REACTIONS (3)
  - COUGH [None]
  - CROUP NONINFECTIOUS [None]
  - PRURITUS [None]
